FAERS Safety Report 5345007-5 (Version None)
Quarter: 2007Q2

REPORT INFORMATION
  Report Type: 
  Country: None (occurrence: None)
  Receive Date: 20070416
  Receipt Date: 20061226
  Transmission Date: 20071010
  Serious: No
  Sender: FDA-Public Use
  Company Number: 2006SP004490

PATIENT
  Age: 58 Year
  Sex: Female
  Weight: 87.9978 kg

DRUGS (6)
  1. LUNESTA [Suspect]
     Indication: INSOMNIA
     Dosage: 3 MG;HS;ORAL
     Route: 048
     Dates: start: 20061222, end: 20061227
  2. TOPROL-XL [Concomitant]
  3. WATER PILLS [Concomitant]
  4. CALCIUM CHANNEL [Concomitant]
  5. BLOCKERS [Concomitant]
  6. BETA BLOCKING AGENTS [Concomitant]

REACTIONS (2)
  - DYSGEUSIA [None]
  - INSOMNIA [None]
